FAERS Safety Report 14262439 (Version 4)
Quarter: 2018Q2

REPORT INFORMATION
  Report Type: Spontaneous
  Country: IT (occurrence: IT)
  Receive Date: 20171208
  Receipt Date: 20180402
  Transmission Date: 20180711
  Serious: Yes (Other)
  Sender: FDA-Public Use
  Company Number: IT-SUN PHARMACEUTICAL INDUSTRIES LTD-2017RR-155806

PATIENT
  Age: 48 Year
  Sex: Female

DRUGS (2)
  1. AZITHROMYCIN ANHYDROUS. [Suspect]
     Active Substance: AZITHROMYCIN ANHYDROUS
     Indication: PRODUCT USE IN UNAPPROVED INDICATION
     Dosage: 1 DF IN TOTAL
     Route: 048
     Dates: start: 20171104, end: 20171104
  2. OMEPRAZOLE. [Concomitant]
     Active Substance: OMEPRAZOLE
     Indication: GASTRITIS
     Dosage: UNK
     Route: 048

REACTIONS (1)
  - Throat tightness [Recovered/Resolved]

NARRATIVE: CASE EVENT DATE: 20171104
